FAERS Safety Report 22187240 (Version 1)
Quarter: 2023Q2

REPORT INFORMATION
  Report Type: Spontaneous
  Country: IR (occurrence: IR)
  Receive Date: 20230407
  Receipt Date: 20230407
  Transmission Date: 20230722
  Serious: Yes (Life-Threatening, Hospitalization)
  Sender: FDA-Public Use
  Company Number: IR-BAUSCH-BL-2023-005296

PATIENT
  Age: 32 Year
  Sex: Male

DRUGS (4)
  1. DEXAMETHASONE [Suspect]
     Active Substance: DEXAMETHASONE
     Indication: COVID-19
     Route: 065
     Dates: start: 20210726, end: 20210804
  2. TOCILIZUMAB [Suspect]
     Active Substance: TOCILIZUMAB
     Indication: COVID-19
     Dosage: SINGLE DOSE
     Route: 065
     Dates: start: 202107
  3. REMDESIVIR [Concomitant]
     Active Substance: REMDESIVIR
     Indication: COVID-19
     Dosage: LOADING DOSE FOR THE FIRST DAY
     Route: 065
     Dates: start: 20210726
  4. REMDESIVIR [Concomitant]
     Active Substance: REMDESIVIR
     Dates: start: 20210727, end: 20210730

REACTIONS (3)
  - Phaeohyphomycosis [Not Recovered/Not Resolved]
  - Neoscytalidium infection [Not Recovered/Not Resolved]
  - Cerebral fungal infection [Not Recovered/Not Resolved]

NARRATIVE: CASE EVENT DATE: 20210819
